FAERS Safety Report 22205987 (Version 1)
Quarter: 2023Q2

REPORT INFORMATION
  Report Type: Report from Study
  Country: AU (occurrence: AU)
  Receive Date: 20230413
  Receipt Date: 20230413
  Transmission Date: 20230722
  Serious: Yes (Other)
  Sender: FDA-Public Use
  Company Number: AU-ABBVIE-4726252

PATIENT
  Age: 56 Year
  Sex: Female
  Weight: 79 kg

DRUGS (9)
  1. UPADACITINIB [Suspect]
     Active Substance: UPADACITINIB
     Indication: Product used for unknown indication
     Route: 048
     Dates: start: 20211111
  2. VARICELLA-ZOSTER VIRUS STRAIN OKA/MERCK LIVE ANTIGEN [Concomitant]
     Active Substance: VARICELLA-ZOSTER VIRUS STRAIN OKA/MERCK LIVE ANTIGEN
     Indication: Product used for unknown indication
     Dates: start: 20230216
  3. PREMARIN [Concomitant]
     Active Substance: ESTROGENS, CONJUGATED
     Indication: Hysterectomy
     Route: 048
     Dates: start: 2006, end: 20230406
  4. METHOTREXATE [Concomitant]
     Active Substance: METHOTREXATE
     Indication: Product used for unknown indication
     Route: 048
     Dates: start: 20200720, end: 20220217
  5. INFLUENZA VIRUS VACCINE [Concomitant]
     Active Substance: INFLUENZA VIRUS VACCINE
     Indication: Product used for unknown indication
     Dates: start: 20220422
  6. COVID-19 vaccine [Concomitant]
     Indication: COVID-19 immunisation
     Dates: start: 20210804, end: 20210804
  7. COVID-19 vaccine [Concomitant]
     Indication: COVID-19 immunisation
     Dates: start: 20230114, end: 20230114
  8. COVID-19 vaccine [Concomitant]
     Indication: COVID-19 immunisation
     Dates: start: 20210512, end: 20210512
  9. COVID-19 vaccine [Concomitant]
     Indication: COVID-19 immunisation
     Dates: start: 20220124, end: 20220124

REACTIONS (1)
  - Invasive breast carcinoma [Not Recovered/Not Resolved]

NARRATIVE: CASE EVENT DATE: 20230406
